FAERS Safety Report 8834417 (Version 1)
Quarter: 2012Q4

REPORT INFORMATION
  Report Type: Spontaneous
  Country: US (occurrence: None)
  Receive Date: 20121010
  Receipt Date: 20121010
  Transmission Date: 20130627
  Serious: No
  Sender: FDA-Public Use
  Company Number: None

PATIENT
  Age: 43 Year
  Sex: Female

DRUGS (1)
  1. ADVAIR [Suspect]
     Indication: MULTIPLE ALLERGIES
     Dosage: use one inhalation two times a day
     Route: 055

REACTIONS (1)
  - Device malfunction [None]
